FAERS Safety Report 15439332 (Version 2)
Quarter: 2018Q4

REPORT INFORMATION
  Report Type: Spontaneous
  Country: US (occurrence: US)
  Receive Date: 20180928
  Receipt Date: 20181217
  Transmission Date: 20190204
  Serious: Yes (Other)
  Sender: FDA-Public Use
  Company Number: US-ACCORD-072791

PATIENT
  Age: 29 Year
  Sex: Female
  Weight: 58.97 kg

DRUGS (3)
  1. ERGOCALCIFEROL. [Concomitant]
     Active Substance: ERGOCALCIFEROL
  2. HYDROCHLOROTHIAZIDE ACCORD [Suspect]
     Active Substance: HYDROCHLOROTHIAZIDE
     Indication: OEDEMA
     Route: 048
     Dates: start: 20180515, end: 20180604
  3. LEVOTHYROXINE. [Concomitant]
     Active Substance: LEVOTHYROXINE
     Dosage: 50 MCG QD

REACTIONS (5)
  - Decreased appetite [Recovered/Resolved]
  - Abdominal distension [Recovered/Resolved]
  - IgA nephropathy [Not Recovered/Not Resolved]
  - Nausea [Recovered/Resolved]
  - Blood pressure decreased [Recovering/Resolving]

NARRATIVE: CASE EVENT DATE: 201807
